FAERS Safety Report 12182244 (Version 2)
Quarter: 2016Q2

REPORT INFORMATION
  Report Type: Spontaneous
  Country: IT (occurrence: IT)
  Receive Date: 20160316
  Receipt Date: 20160505
  Transmission Date: 20160815
  Serious: Yes (Death, Other)
  Sender: FDA-Public Use
  Company Number: IT-HOSPIRA-3207438

PATIENT
  Sex: Male

DRUGS (1)
  1. MIDAZOLAM [Suspect]
     Active Substance: MIDAZOLAM\MIDAZOLAM HYDROCHLORIDE
     Indication: PRODUCT USED FOR UNKNOWN INDICATION

REACTIONS (4)
  - Overdose [Unknown]
  - Drug abuse [Fatal]
  - Sopor [Unknown]
  - Respiratory failure [Unknown]
